FAERS Safety Report 8939329 (Version 1)
Quarter: 2012Q4

REPORT INFORMATION
  Report Type: 
  Country: US (occurrence: US)
  Receive Date: 20121203
  Receipt Date: 20121203
  Transmission Date: 20130627
  Serious: No
  Sender: FDA-Public Use
  Company Number: US-PFIZER INC-2012300351

PATIENT
  Sex: Female

DRUGS (2)
  1. EFFEXOR XR [Suspect]
     Dosage: 75 mg, UNK
  2. EFFEXOR XR [Suspect]
     Dosage: 150 mg, UNK

REACTIONS (3)
  - Cold sweat [Unknown]
  - Withdrawal syndrome [Unknown]
  - Anger [Unknown]
